FAERS Safety Report 7917371-1 (Version None)
Quarter: 2011Q4

REPORT INFORMATION
  Report Type: 
  Country: None (occurrence: None)
  Receive Date: 20111116
  Receipt Date: 20111110
  Transmission Date: 20120403
  Serious: Yes (Death, Other)
  Sender: FDA-Public Use
  Company Number: PHHY2011BR099407

PATIENT
  Sex: Female

DRUGS (7)
  1. EXFORGE [Suspect]
     Dosage: 160 MG VALS AND 5 MG AMLO
  2. BETAHISTINE HYDROCHLORIDE [Concomitant]
  3. HYGROTON [Concomitant]
  4. AGASTEN [Concomitant]
  5. SIMVASTATIN [Concomitant]
  6. CLONIDINE HYDROCHLORIDE [Concomitant]
  7. CITALOPRAM HYDROBROMIDE [Concomitant]

REACTIONS (10)
  - RESPIRATORY FAILURE [None]
  - CONSTIPATION [None]
  - URINARY TRACT INFECTION [None]
  - BLOOD PRESSURE INCREASED [None]
  - DIABETES MELLITUS [None]
  - MALAISE [None]
  - INFECTION [None]
  - SEPSIS [None]
  - DRY SKIN [None]
  - RENAL FAILURE [None]
